FAERS Safety Report 9762802 (Version 1)
Quarter: 2013Q4

REPORT INFORMATION
  Report Type: Spontaneous
  Country: GB (occurrence: GB)
  Receive Date: 20131216
  Receipt Date: 20131216
  Transmission Date: 20140711
  Serious: Yes (Life-Threatening, Hospitalization)
  Sender: FDA-Public Use
  Company Number: GB-MYLANLABS-2013S1027425

PATIENT
  Age: 14 Year
  Sex: Female

DRUGS (2)
  1. AZATHIOPRINE [Suspect]
     Indication: CROHN^S DISEASE
     Dosage: 1.5 MG/KG/DAY
     Route: 065
  2. AZATHIOPRINE [Suspect]
     Indication: CROHN^S DISEASE
     Dosage: 2.5 MG/KG/DAY
     Route: 065

REACTIONS (2)
  - Epstein-Barr virus infection [Recovered/Resolved]
  - Histiocytosis haematophagic [Recovered/Resolved]
